FAERS Safety Report 24703683 (Version 1)
Quarter: 2024Q4

REPORT INFORMATION
  Report Type: Spontaneous
  Country: CN (occurrence: CN)
  Receive Date: 20241206
  Receipt Date: 20241206
  Transmission Date: 20250115
  Serious: Yes (Hospitalization)
  Sender: ABBVIE
  Company Number: CN-PFIZER INC-PV202400155045

PATIENT
  Age: 54 Year
  Sex: Female

DRUGS (4)
  1. AVIBACTAM SODIUM\CEFTAZIDIME [Suspect]
     Active Substance: AVIBACTAM SODIUM\CEFTAZIDIME
     Indication: Anti-infective therapy
     Dosage: TIME INTERVAL: 0.33333333 DAYS: 2.5 G, 3X/DAY
     Route: 041
     Dates: start: 20241105, end: 20241112
  2. PROGRAF [Suspect]
     Active Substance: TACROLIMUS
     Indication: Prophylaxis against transplant rejection
     Dosage: 3 MG, 2X/DAY
     Route: 065
     Dates: start: 20241105, end: 20241107
  3. PROGRAF [Suspect]
     Active Substance: TACROLIMUS
     Indication: Prophylaxis against transplant rejection
     Dosage: 1 MG, 2X/DAY
     Route: 048
     Dates: start: 20241108, end: 20241114
  4. STERILE WATER [Concomitant]
     Active Substance: WATER
     Indication: Vehicle solution use
     Dosage: TIME INTERVAL: 0.33333333 DAYS: 10 ML, 3X/DAY
     Route: 041
     Dates: start: 20241105, end: 20241112

REACTIONS (5)
  - Indifference [Recovering/Resolving]
  - Language disorder [Recovering/Resolving]
  - Sluggishness [Recovering/Resolving]
  - Muscle twitching [Recovering/Resolving]
  - Unresponsive to stimuli [Recovering/Resolving]

NARRATIVE: CASE EVENT DATE: 20241111
